FAERS Safety Report 13579032 (Version 4)
Quarter: 2017Q3

REPORT INFORMATION
  Report Type: Report from Study
  Country: CA (occurrence: CA)
  Receive Date: 20170524
  Receipt Date: 20170726
  Transmission Date: 20171127
  Serious: Yes (Other)
  Sender: FDA-Public Use
  Company Number: CA-AMGEN-CANSL2017076675

PATIENT
  Age: 78 Year
  Sex: Female

DRUGS (2)
  1. METFORMIN [Concomitant]
     Active Substance: METFORMIN HYDROCHLORIDE
     Dosage: UNK
  2. REPATHA [Suspect]
     Active Substance: EVOLOCUMAB
     Indication: ARTERIOSCLEROSIS
     Dosage: 140 MG/ML, Q2WK
     Route: 065
     Dates: start: 20170403, end: 20170418

REACTIONS (13)
  - Arthralgia [Recovering/Resolving]
  - Pain in extremity [Recovered/Resolved]
  - Fatigue [Unknown]
  - Headache [Recovering/Resolving]
  - Asthenia [Recovered/Resolved]
  - Unevaluable event [Recovered/Resolved]
  - Facial pain [Recovered/Resolved]
  - Nausea [Recovering/Resolving]
  - Chest discomfort [Unknown]
  - Influenza like illness [Unknown]
  - Hypersensitivity [Recovering/Resolving]
  - Toothache [Recovered/Resolved]
  - Middle insomnia [Recovered/Resolved]

NARRATIVE: CASE EVENT DATE: 201704
